FAERS Safety Report 4885383-0 (Version None)
Quarter: 2005Q4

REPORT INFORMATION
  Report Type: 
  Country: None (occurrence: None)
  Receive Date: 20051222
  Receipt Date: 20050216
  Transmission Date: 20060501
  Serious: Yes (Other)
  Sender: FDA-Public Use
  Company Number: HQWYE471322FEB05

PATIENT
  Age: 64 Year
  Sex: Female
  Weight: 73.55 kg

DRUGS (3)
  1. EFFEXOR XR [Suspect]
     Indication: FIBROMYALGIA
     Dosage: 75 MG 3X PER 1 DAY, ORAL
     Route: 048
  2. THYROID TAB [Concomitant]
  3. PLAVIX [Concomitant]

REACTIONS (4)
  - CRYING [None]
  - DIZZINESS [None]
  - DRUG WITHDRAWAL SYNDROME [None]
  - UNEVALUABLE EVENT [None]
